FAERS Safety Report 8545447 (Version 6)
Quarter: 2014Q1

REPORT INFORMATION
  Report Type: Report from Study
  Country: ES (occurrence: ES)
  Receive Date: 20120503
  Receipt Date: 20140212
  Transmission Date: 20141002
  Serious: Yes (Life-Threatening, Hospitalization)
  Sender: FDA-Public Use
  Company Number: ES-CELGENEUS-144-21880-12042709

PATIENT
  Age: 79 Year
  Sex: Male
  Weight: 100 kg

DRUGS (17)
  1. REVLIMID [Suspect]
     Indication: PLASMA CELL MYELOMA
     Dosage: DAYS 1-20
     Route: 048
     Dates: start: 20110616, end: 20110705
  2. REVLIMID [Suspect]
     Dosage: DAYS 1-20
     Route: 048
     Dates: start: 20120403, end: 20120422
  3. CARFILZOMIB [Suspect]
     Indication: PLASMA CELL MYELOMA
     Route: 065
     Dates: start: 20110616, end: 20110617
  4. CARFILZOMIB [Suspect]
     Route: 065
     Dates: start: 20110622, end: 20110701
  5. CARFILZOMIB [Suspect]
     Route: 065
     Dates: start: 20120403, end: 20120418
  6. CARFILZOMIB [Suspect]
     Route: 065
     Dates: start: 20110915, end: 20110930
  7. CARFILZOMIB [Suspect]
     Route: 065
     Dates: start: 20111013, end: 20111028
  8. DEXAMETHASONE [Suspect]
     Indication: PLASMA CELL MYELOMA
     Route: 065
     Dates: start: 20110616, end: 20110707
  9. DEXAMETHASONE [Suspect]
     Route: 065
     Dates: start: 20110818, end: 20110908
  10. DEXAMETHASONE [Suspect]
     Route: 065
     Dates: start: 20120222, end: 20120229
  11. DEXAMETHASONE [Suspect]
     Route: 065
     Dates: start: 20120403, end: 20120417
  12. AAS [Concomitant]
     Indication: ANTICOAGULANT THERAPY
     Dosage: 250 MILLIGRAM
     Route: 048
     Dates: start: 20110616
  13. ACICLOVIR [Concomitant]
     Indication: ANTIVIRAL PROPHYLAXIS
     Dosage: 800 MILLIGRAM
     Route: 048
     Dates: start: 20110616
  14. ALPRAZOLAM [Concomitant]
     Indication: ANXIETY
     Route: 048
     Dates: start: 20110728
  15. LEVOFLOXACIN [Concomitant]
     Indication: INFECTION PROPHYLAXIS
     Dosage: 500 MILLIGRAM
     Route: 048
     Dates: start: 20111212
  16. LORAZEPAM [Concomitant]
     Indication: ANXIETY
     Route: 048
     Dates: start: 20110728
  17. OMEPRAZOLE [Concomitant]
     Indication: PROPHYLAXIS
     Dosage: PRN
     Route: 048
     Dates: start: 20110616

REACTIONS (1)
  - Hypocalcaemia [Recovered/Resolved]
